FAERS Safety Report 11145750 (Version 2)
Quarter: 2015Q2

REPORT INFORMATION
  Report Type: Spontaneous
  Country: JP (occurrence: JP)
  Receive Date: 20150528
  Receipt Date: 20150619
  Transmission Date: 20150821
  Serious: Yes (Other)
  Sender: FDA-Public Use
  Company Number: JP-PFIZER INC-2015178305

PATIENT
  Age: 31 Year
  Sex: Male

DRUGS (2)
  1. CHAMPIX [Suspect]
     Active Substance: VARENICLINE TARTRATE
     Indication: SMOKING CESSATION THERAPY
     Dosage: 0.5 MG, 1X/DAY
     Route: 048
     Dates: start: 20150519, end: 20150521
  2. CHAMPIX [Suspect]
     Active Substance: VARENICLINE TARTRATE
     Dosage: 0.5 MG, 2X/DAY
     Route: 048
     Dates: start: 20150522, end: 20150523

REACTIONS (2)
  - Erythema [Recovered/Resolved]
  - Eyelid oedema [Recovered/Resolved]

NARRATIVE: CASE EVENT DATE: 20150523
